FAERS Safety Report 21504845 (Version 1)
Quarter: 2022Q4

REPORT INFORMATION
  Report Type: Report from Study
  Country: FR (occurrence: None)
  Receive Date: 20221025
  Receipt Date: 20221025
  Transmission Date: 20230113
  Serious: Yes (Hospitalization)
  Sender: FDA-Public Use
  Company Number: FR-ROCHE-3083312

PATIENT
  Age: 69 Year
  Sex: Male
  Weight: 70 kg

DRUGS (3)
  1. ATEZOLIZUMAB [Suspect]
     Active Substance: ATEZOLIZUMAB
     Indication: Gastrointestinal stromal tumour
     Route: 042
     Dates: start: 20220412, end: 20220412
  2. IMATINIB [Suspect]
     Active Substance: IMATINIB
     Indication: Gastrointestinal stromal tumour
     Route: 048
     Dates: start: 20220408
  3. APIXABAN [Concomitant]
     Active Substance: APIXABAN

REACTIONS (1)
  - Neuralgia [Recovered/Resolved]

NARRATIVE: CASE EVENT DATE: 20220413
